FAERS Safety Report 6615826 (Version 3)
Quarter: 2013Q3

REPORT INFORMATION
  Report Type: Spontaneous
  Country: US (occurrence: US)
  Receive Date: 20080416
  Receipt Date: 20130703
  Transmission Date: 20140515
  Serious: Yes (Other)
  Sender: FDA-Public Use
  Company Number: US-ROCHE-544714

PATIENT
  Age: 15 Year
  Sex: Male
  Weight: 68 kg

DRUGS (2)
  1. ACCUTANE [Suspect]
     Indication: ACNE
     Dosage: THE PATIENT WAS DISPENSED ACCUTANE 40 MG CAPSULE ON 4/3/01, 5/4/01, 6/6/01, 7/5/01 AND 8/7/01
     Route: 065
     Dates: start: 20010403, end: 20010907
  2. BACTROBAN [Concomitant]
     Dosage: THE PATIENT WAS TAKING BACTROBAN IN OCEAN MIST, THREE TIMES A DAY INTO NOSTRILS
     Route: 065
     Dates: start: 20010404, end: 200109

REACTIONS (10)
  - Colitis ulcerative [Recovering/Resolving]
  - Inflammatory bowel disease [Unknown]
  - Colitis [Unknown]
  - Colitis [Unknown]
  - Ingrowing nail [Unknown]
  - Emotional distress [Not Recovered/Not Resolved]
  - Myalgia [Recovered/Resolved]
  - Arthralgia [Recovered/Resolved]
  - Rash [Recovered/Resolved]
  - Gastrooesophageal reflux disease [Unknown]
